FAERS Safety Report 6067903-6 (Version None)
Quarter: 2009Q1

REPORT INFORMATION
  Report Type: 
  Country: None (occurrence: None)
  Receive Date: 20090203
  Receipt Date: 20090123
  Transmission Date: 20090719
  Serious: Yes (Death, Hospitalization, Other)
  Sender: FDA-Public Use
  Company Number: ADE2009-0426

PATIENT
  Age: 85 Year
  Sex: Female
  Weight: 53 kg

DRUGS (7)
  1. SIMVASTATIN [Suspect]
     Indication: MYOCARDIAL ISCHAEMIA
     Dosage: 40MG - QD - ORAL
     Route: 048
     Dates: start: 20080404, end: 20080717
  2. ASPIRIN [Concomitant]
  3. NITROGLYCERIN [Concomitant]
  4. ISMN [Concomitant]
  5. NICORANDIL [Concomitant]
  6. OLMESARTAN MEDOXOMIL [Concomitant]
  7. RAMIPRIL [Concomitant]

REACTIONS (6)
  - CARDIAC FAILURE [None]
  - MEMORY IMPAIRMENT [None]
  - MOVEMENT DISORDER [None]
  - MYOCARDIAL INFARCTION [None]
  - RENAL FAILURE [None]
  - RHABDOMYOLYSIS [None]
